FAERS Safety Report 6424435-0 (Version None)
Quarter: 2009Q4

REPORT INFORMATION
  Report Type: 
  Country: None (occurrence: None)
  Receive Date: 20091103
  Receipt Date: 20091028
  Transmission Date: 20100525
  Serious: Yes (Hospitalization)
  Sender: FDA-Public Use
  Company Number: JP-BRACCO-002713

PATIENT
  Age: 59 Year
  Sex: Female

DRUGS (5)
  1. IOPAMIDOL [Suspect]
     Indication: ANGIOGRAM CEREBRAL
     Route: 013
     Dates: start: 20090930, end: 20090930
  2. IOPAMIDOL [Suspect]
     Indication: CAROTID ARTERY ANEURYSM
     Dosage: 4 ML/SEC
     Route: 013
     Dates: start: 20090930, end: 20090930
  3. SOLU-MEDROL [Concomitant]
     Route: 042
     Dates: start: 20090930, end: 20090930
  4. SOLU-MEDROL [Concomitant]
     Route: 042
     Dates: start: 20090930, end: 20090930
  5. NICARPINE [Concomitant]
     Route: 042
     Dates: start: 20090930, end: 20090930

REACTIONS (5)
  - BLOOD PRESSURE INCREASED [None]
  - HYPERHIDROSIS [None]
  - NAUSEA [None]
  - VERTIGO [None]
  - VOMITING [None]
